FAERS Safety Report 23926902 (Version 1)
Quarter: 2024Q2

REPORT INFORMATION
  Report Type: Report from Study
  Country: US (occurrence: US)
  Receive Date: 20240531
  Receipt Date: 20240531
  Transmission Date: 20240716
  Serious: Yes (Death, Other)
  Sender: FDA-Public Use
  Company Number: US-GILEAD-2024-0675145

PATIENT
  Age: 14 Year
  Sex: Male

DRUGS (16)
  1. AZTREONAM LYSINE [Suspect]
     Active Substance: AZTREONAM LYSINE
     Indication: Cystic fibrosis lung
     Dosage: 75 MG, TID [THREE TIMES DAILY. ALTERNATE WITH TOBI THERAPY 14 DAYS ON AND 14 DAYS OFF AS DIRECTED BY
     Route: 055
  2. TOBI [Concomitant]
     Active Substance: TOBRAMYCIN
  3. NEXIUM [Concomitant]
     Active Substance: ESOMEPRAZOLE MAGNESIUM
  4. SIMETHICONE (DIMETHICONE) [Concomitant]
     Active Substance: DIMETHICONE
  5. ACETAZOLAMIDE [Concomitant]
     Active Substance: ACETAZOLAMIDE
  6. ZYRTEC [Concomitant]
     Active Substance: CETIRIZINE HYDROCHLORIDE
  7. SOTALOL [Concomitant]
     Active Substance: SOTALOL
  8. ADVAIR HFA [Concomitant]
     Active Substance: FLUTICASONE PROPIONATE\SALMETEROL XINAFOATE
  9. BETHKIS [Concomitant]
     Active Substance: TOBRAMYCIN
  10. CALCIUM\VITAMIN D [Concomitant]
     Active Substance: CALCIUM\VITAMIN D
  11. XOPENEX [Concomitant]
     Active Substance: LEVALBUTEROL HYDROCHLORIDE
  12. PULMOZYME [Concomitant]
     Active Substance: DORNASE ALFA
  13. LEVOCARNITINE [Concomitant]
     Active Substance: LEVOCARNITINE
  14. KEPPRA [Concomitant]
     Active Substance: LEVETIRACETAM
  15. ERGOCALCIFEROL [Concomitant]
     Active Substance: ERGOCALCIFEROL
  16. SODIUM CHLORIDE [Concomitant]
     Active Substance: SODIUM CHLORIDE

REACTIONS (2)
  - Death [Fatal]
  - Off label use [Not Recovered/Not Resolved]

NARRATIVE: CASE EVENT DATE: 20240401
